FAERS Safety Report 4963455-X (Version None)
Quarter: 2006Q2

REPORT INFORMATION
  Report Type: 
  Country: None (occurrence: None)
  Receive Date: 20060404
  Receipt Date: 20060404
  Transmission Date: 20061013
  Serious: Yes (Hospitalization)
  Sender: FDA-Public Use
  Company Number: None

PATIENT
  Age: 88 Year
  Sex: Male
  Weight: 79.3795 kg

DRUGS (2)
  1. MECLIZINE [Suspect]
     Indication: DIZZINESS
     Dosage: 12.5 MG PO TID
     Route: 048
  2. METHOCARBAMOL [Suspect]
     Indication: SHOULDER PAIN
     Dosage: 500 MG-1000 MG BID IF NEEDED

REACTIONS (1)
  - MENTAL STATUS CHANGES [None]
